FAERS Safety Report 8290744-6 (Version None)
Quarter: 2012Q2

REPORT INFORMATION
  Report Type: 
  Country: None (occurrence: None)
  Receive Date: 20120417
  Receipt Date: 20120412
  Transmission Date: 20120825
  Serious: Yes (Hospitalization)
  Sender: FDA-Public Use
  Company Number: JP-PFIZER INC-2012078806

PATIENT
  Age: 58 Year
  Sex: Female
  Weight: 40 kg

DRUGS (1)
  1. ZITHROMAX [Suspect]
     Dosage: UNK
     Route: 048
     Dates: start: 20110725

REACTIONS (3)
  - AUTONOMIC NERVOUS SYSTEM IMBALANCE [None]
  - PERIPHERAL SENSORY NEUROPATHY [None]
  - ERYTHEMA MULTIFORME [None]
